FAERS Safety Report 6016269-6 (Version None)
Quarter: 2008Q4

REPORT INFORMATION
  Report Type: 
  Country: None (occurrence: None)
  Receive Date: 20081218
  Receipt Date: 20081203
  Transmission Date: 20090506
  Serious: Yes (Hospitalization)
  Sender: FDA-Public Use
  Company Number: KV200800838

PATIENT
  Age: 73 Year
  Sex: Male
  Weight: 105.2 kg

DRUGS (7)
  1. ISOSORBIDE MONONITRATE [Suspect]
     Indication: CORONARY ARTERY DISEASE
     Dosage: 60 MG, QD, ORAL
     Route: 048
     Dates: start: 20080201, end: 20081109
  2. TOPROL-XL [Concomitant]
  3. DIOVAN [Concomitant]
  4. ZETIA [Concomitant]
  5. DETROL         /01350201/ (TOLTERODINE) [Concomitant]
  6. HYTRIN [Concomitant]
  7. ASPIRIN [Concomitant]

REACTIONS (4)
  - DIZZINESS [None]
  - FALL [None]
  - HYPOTENSION [None]
  - PRODUCT QUALITY ISSUE [None]
